FAERS Safety Report 5145968-3 (Version None)
Quarter: 2006Q4

REPORT INFORMATION
  Report Type: 
  Country: None (occurrence: None)
  Receive Date: 20061108
  Receipt Date: 20061026
  Transmission Date: 20070319
  Serious: Yes (Other)
  Sender: FDA-Public Use
  Company Number: CH-BRISTOL-MYERS SQUIBB COMPANY-13566583

PATIENT
  Age: 61 Year
  Sex: Male

DRUGS (5)
  1. ENDOXAN [Suspect]
     Indication: MULTIPLE MYELOMA
     Route: 042
     Dates: start: 20060222
  2. THALIDOMIDE [Suspect]
     Indication: MULTIPLE MYELOMA
     Route: 048
     Dates: start: 20051213
  3. PENTAMIDINE ISETHIONATE [Suspect]
     Indication: MULTIPLE MYELOMA
     Route: 055
     Dates: start: 20060328
  4. ZOMETA [Suspect]
     Indication: MULTIPLE MYELOMA
     Route: 042
     Dates: start: 20051222
  5. DEXAMETHASONE TAB [Concomitant]
     Indication: MULTIPLE MYELOMA
     Route: 048
     Dates: start: 20051213

REACTIONS (1)
  - DEAFNESS NEUROSENSORY [None]
